FAERS Safety Report 10712796 (Version 1)
Quarter: 2015Q1

REPORT INFORMATION
  Report Type: Spontaneous
  Country: GB (occurrence: None)
  Receive Date: 20150113
  Receipt Date: 20150113
  Transmission Date: 20150721
  Serious: Yes (Death, Hospitalization, Other)
  Sender: FDA-Public Use
  Company Number: CL-604-2015

PATIENT
  Age: 65 Year
  Sex: Female

DRUGS (9)
  1. ONDANSETRON [Concomitant]
     Active Substance: ONDANSETRON
  2. SCALE INSULIN REGIMEN [Concomitant]
  3. METRONIDAZOLE UNK [Suspect]
     Active Substance: METRONIDAZOLE
     Indication: CHOLANGITIS
     Route: 042
  4. FUROSEMIDE. [Concomitant]
     Active Substance: FUROSEMIDE
  5. MORPHINE [Concomitant]
     Active Substance: MORPHINE
  6. PANTOPRAZOLE [Concomitant]
     Active Substance: PANTOPRAZOLE SODIUM
  7. RIFAXIMIN [Concomitant]
     Active Substance: RIFAXIMIN
  8. LACTULOSE. [Concomitant]
     Active Substance: LACTULOSE
  9. CIPROFLOXACIN. [Concomitant]
     Active Substance: CIPROFLOXACIN

REACTIONS (15)
  - Toxicity to various agents [None]
  - Thrombocytopenia [None]
  - Cerebral haemorrhage [None]
  - Ammonia increased [None]
  - Hypophagia [None]
  - Leukopenia [None]
  - Coagulopathy [None]
  - Chest discomfort [None]
  - Sepsis [None]
  - Encephalopathy [None]
  - Anaemia [None]
  - Hypotension [None]
  - Urine output decreased [None]
  - Nausea [None]
  - Vomiting [None]
